FAERS Safety Report 20797650 (Version 1)
Quarter: 2022Q2

REPORT INFORMATION
  Report Type: Spontaneous
  Country: US (occurrence: US)
  Receive Date: 20220506
  Receipt Date: 20220506
  Transmission Date: 20220721
  Serious: No
  Sender: FDA-Public Use
  Company Number: US-PFIZER INC-202200468209

PATIENT
  Age: 50 Year
  Sex: Male

DRUGS (1)
  1. SUTENT [Suspect]
     Active Substance: SUNITINIB MALATE
     Indication: Renal cell carcinoma
     Dosage: 37.5 MG, CYCLIC (DAILY FOR 14 OUT OF 21 DAYS)
     Dates: start: 202011

REACTIONS (3)
  - Rash erythematous [Unknown]
  - Burning sensation [Unknown]
  - Off label use [Unknown]
